FAERS Safety Report 16208676 (Version 2)
Quarter: 2019Q2

REPORT INFORMATION
  Report Type: Spontaneous
  Country: US (occurrence: US)
  Receive Date: 20190417
  Receipt Date: 20190522
  Transmission Date: 20190711
  Serious: No
  Sender: FDA-Public Use
  Company Number: US-BIOGEN-2015BI119029

PATIENT
  Age: 32 Year
  Sex: Female

DRUGS (2)
  1. AVONEX [Suspect]
     Active Substance: INTERFERON BETA-1A
     Route: 030
     Dates: start: 201409, end: 201508
  2. AVONEX [Suspect]
     Active Substance: INTERFERON BETA-1A
     Indication: MULTIPLE SCLEROSIS
     Route: 030
     Dates: start: 201408, end: 201409

REACTIONS (4)
  - Arthralgia [Recovered/Resolved with Sequelae]
  - General symptom [Unknown]
  - Pain [Recovered/Resolved with Sequelae]
  - Rhinorrhoea [Unknown]

NARRATIVE: CASE EVENT DATE: 201408
